FAERS Safety Report 13247411 (Version 2)
Quarter: 2017Q1

REPORT INFORMATION
  Report Type: Report from Study
  Country: AR (occurrence: AR)
  Receive Date: 20170217
  Receipt Date: 20170320
  Transmission Date: 20170428
  Serious: Yes (Hospitalization)
  Sender: FDA-Public Use
  Company Number: PHHY2017AR025351

PATIENT
  Age: 63 Year
  Sex: Male

DRUGS (3)
  1. DIOVAN [Suspect]
     Active Substance: VALSARTAN
     Indication: HYPERTENSION
     Dosage: (160MG IN THE MORNING AND ONE OF DIOVAN 80MG AT THE AFTERNOON OR AT NIGHT)
     Route: 065
     Dates: start: 201606
  2. METFORMIN [Concomitant]
     Active Substance: METFORMIN HYDROCHLORIDE
     Indication: PRODUCT USED FOR UNKNOWN INDICATION
     Dosage: 3 DF, QD
     Route: 065
  3. DIOVAN [Suspect]
     Active Substance: VALSARTAN
     Dosage: 80 MG, BID (1 IN THE MORNING AND 1 IN THE AFTERNOON)
     Route: 065

REACTIONS (3)
  - Abdominal pain upper [Recovered/Resolved]
  - Coronary artery occlusion [Recovered/Resolved]
  - Inappropriate schedule of drug administration [Unknown]

NARRATIVE: CASE EVENT DATE: 20170113
